FAERS Safety Report 10119486 (Version 2)
Quarter: 2015Q1

REPORT INFORMATION
  Report Type: Other
  Country: US (occurrence: US)
  Receive Date: 20140426
  Receipt Date: 20150218
  Transmission Date: 20150720
  Serious: Yes (Hospitalization, Other)
  Sender: FDA-Public Use
  Company Number: US-GSKPPD-2014GSK020340

PATIENT
  Age: 66 Year
  Sex: Male

DRUGS (7)
  1. PRINIVIL [Concomitant]
     Active Substance: LISINOPRIL
  2. ATENOLOL. [Concomitant]
     Active Substance: ATENOLOL
  3. AVANDIA [Suspect]
     Active Substance: ROSIGLITAZONE MALEATE
     Indication: DIABETES MELLITUS
     Dosage: DATES OF AVANDIA USE COULD NOT BE CONFIRMED IN RECORDS REVIEWED.
     Route: 048
  4. DIGOXIN. [Concomitant]
     Active Substance: DIGOXIN
  5. NITROGLYCERIN. [Concomitant]
     Active Substance: NITROGLYCERIN
     Route: 060
  6. LASIX [Concomitant]
     Active Substance: FUROSEMIDE
  7. NITRO PATCH [Concomitant]

REACTIONS (3)
  - Cardiac failure congestive [Recovered/Resolved]
  - Coronary arterial stent insertion [Recovered/Resolved]
  - Myocardial infarction [Recovered/Resolved]

NARRATIVE: CASE EVENT DATE: 20001013
